FAERS Safety Report 24220880 (Version 3)
Quarter: 2024Q3

REPORT INFORMATION
  Report Type: Report from Study
  Country: CH (occurrence: CH)
  Receive Date: 20240819
  Receipt Date: 20240904
  Transmission Date: 20241017
  Serious: Yes (Hospitalization, Other)
  Sender: ABBVIE
  Company Number: CH-ABBVIE-5859890

PATIENT
  Sex: Female

DRUGS (3)
  1. CARBIDOPA\LEVODOPA [Suspect]
     Active Substance: CARBIDOPA\LEVODOPA
     Indication: Parkinson^s disease
     Dosage: MD: 8.0ML, CRD: 1.9 ML/H, ED: 1 ML?FREQUENCY TEXT: 16H THERAPY
     Route: 050
     Dates: start: 20240726, end: 20240729
  2. CARBIDOPA\LEVODOPA [Suspect]
     Active Substance: CARBIDOPA\LEVODOPA
     Dosage: MD: 5.0ML, CRD: 1.3 ML/H, ED: 1 ML?FREQUENCY TEXT: 16H THERAPY
     Route: 050
     Dates: start: 20240723, end: 20240726
  3. APOMORPHINE HYDROCHLORIDE [Concomitant]
     Active Substance: APOMORPHINE HYDROCHLORIDE
     Indication: Parkinson^s disease
     Dosage: 2 MG/H
     Route: 058
     Dates: start: 20240729

REACTIONS (16)
  - Chemical peritonitis [Unknown]
  - Peritonitis [Unknown]
  - Abdominal abscess [Unknown]
  - Device issue [Not Recovered/Not Resolved]
  - Bedridden [Not Recovered/Not Resolved]
  - Asthenia [Not Recovered/Not Resolved]
  - Mobility decreased [Not Recovered/Not Resolved]
  - Enterococcus test positive [Not Recovered/Not Resolved]
  - Stoma site reaction [Not Recovered/Not Resolved]
  - Hyporesponsive to stimuli [Not Recovered/Not Resolved]
  - Wrong technique in device usage process [Unknown]
  - Embedded device [Not Recovered/Not Resolved]
  - Lung abscess [Not Recovered/Not Resolved]
  - Hepatic haematoma [Not Recovered/Not Resolved]
  - General physical health deterioration [Not Recovered/Not Resolved]
  - Palliative care [Not Recovered/Not Resolved]

NARRATIVE: CASE EVENT DATE: 20240101
